FAERS Safety Report 22170480 (Version 1)
Quarter: 2023Q2

REPORT INFORMATION
  Report Type: Spontaneous
  Country: GB (occurrence: GB)
  Receive Date: 20230404
  Receipt Date: 20230404
  Transmission Date: 20230722
  Serious: Yes (Other)
  Sender: FDA-Public Use
  Company Number: None

PATIENT
  Age: 34 Year
  Sex: Female
  Weight: 97 kg

DRUGS (6)
  1. SERTRALINE [Suspect]
     Active Substance: SERTRALINE HYDROCHLORIDE
     Indication: Ill-defined disorder
     Dosage: UNK
     Route: 065
     Dates: start: 20230328
  2. FLUOXETINE [Concomitant]
     Active Substance: FLUOXETINE HYDROCHLORIDE
     Indication: Ill-defined disorder
     Dosage: 1 DOSAGE FORM, QD (TAKE ONE DAILY)
     Route: 065
     Dates: start: 20230328
  3. ALBUTEROL [Concomitant]
     Active Substance: ALBUTEROL
     Indication: Dyspnoea
     Dosage: 2 DOSAGE FORM (INHALE 2 DOSES AS NEEDED FOR BREATHLESSNESS)
     Route: 065
     Dates: start: 20220121
  4. ALBUTEROL [Concomitant]
     Active Substance: ALBUTEROL
     Indication: Ill-defined disorder
  5. SERTRALINE [Concomitant]
     Active Substance: SERTRALINE HYDROCHLORIDE
     Indication: Ill-defined disorder
     Dosage: 1 DOSAGE FORM, QD (TAKE ONE DAILY)
     Route: 065
     Dates: start: 20220422, end: 20230328
  6. TERBUTALINE [Concomitant]
     Active Substance: TERBUTALINE
     Indication: Ill-defined disorder
     Dosage: 1 DOSAGE FORM (ONE DOSE TO BE INHALED TWO TO THREE TIMES A WEEK)
     Route: 065
     Dates: start: 20200817

REACTIONS (2)
  - Dysgeusia [Unknown]
  - Oral pain [Unknown]

NARRATIVE: CASE EVENT DATE: 20230329
